FAERS Safety Report 18649102 (Version 1)
Quarter: 2020Q4

REPORT INFORMATION
  Report Type: Spontaneous
  Country: IT (occurrence: IT)
  Receive Date: 20201222
  Receipt Date: 20201222
  Transmission Date: 20210114
  Serious: Yes (Other)
  Sender: FDA-Public Use
  Company Number: IT-009507513-2012ITA007982

PATIENT
  Age: 77 Year
  Sex: Male
  Weight: 65 kg

DRUGS (1)
  1. KEYTRUDA [Suspect]
     Active Substance: PEMBROLIZUMAB
     Indication: LUNG ADENOCARCINOMA
     Dosage: 200 MILLIGRAM, CYCLICAL
     Route: 042
     Dates: start: 20191128, end: 20200929

REACTIONS (5)
  - Pulmonary toxicity [Recovered/Resolved]
  - Diarrhoea [Recovered/Resolved]
  - Hepatotoxicity [Recovered/Resolved]
  - Dyspnoea [Recovered/Resolved]
  - Nephropathy toxic [Recovered/Resolved]

NARRATIVE: CASE EVENT DATE: 20201008
